FAERS Safety Report 9717950 (Version 1)
Quarter: 2013Q4

REPORT INFORMATION
  Report Type: Spontaneous
  Country: US (occurrence: US)
  Receive Date: 20131125
  Receipt Date: 20131125
  Transmission Date: 20140711
  Serious: No
  Sender: FDA-Public Use
  Company Number: US-VIVUS-2013V1000382

PATIENT
  Sex: Female
  Weight: 102.11 kg

DRUGS (14)
  1. QSYMIA 3.75MG/23MG [Suspect]
     Indication: WEIGHT DECREASED
     Route: 048
     Dates: start: 201302
  2. QSYMIA 7.5MG/46MG [Suspect]
     Indication: WEIGHT DECREASED
     Route: 048
  3. QSYMIA 15MG/92MG [Suspect]
     Indication: WEIGHT DECREASED
     Route: 048
  4. ALLI [Concomitant]
     Indication: WEIGHT DECREASED
     Route: 048
     Dates: start: 201302
  5. FERROUS SULFATE [Concomitant]
     Indication: BLOOD IRON DECREASED
     Route: 048
     Dates: start: 201303
  6. MULTIVITAMIN [Concomitant]
     Indication: PRODUCT USED FOR UNKNOWN INDICATION
     Route: 048
     Dates: start: 2003
  7. LISINOPRIL [Concomitant]
     Indication: HYPERTENSION
     Route: 048
     Dates: start: 2012
  8. AMBIEN [Concomitant]
     Indication: INSOMNIA
     Route: 048
     Dates: start: 2011
  9. ADVAIR [Concomitant]
     Indication: ASTHMA
     Dosage: 250/50 MG
     Dates: start: 2003
  10. ALBUTEROL [Concomitant]
     Indication: ASTHMA
     Dates: start: 2003
  11. ZOLOFT [Concomitant]
     Indication: DEPRESSION
     Route: 048
     Dates: start: 1998
  12. ZOLOFT [Concomitant]
     Indication: BIPOLAR DISORDER
  13. NOVOLOG [Concomitant]
     Indication: DIABETES MELLITUS
  14. LANTUS [Concomitant]
     Indication: DIABETES MELLITUS

REACTIONS (1)
  - Hypertension [Recovering/Resolving]
